FAERS Safety Report 7677456-4 (Version None)
Quarter: 2011Q3

REPORT INFORMATION
  Report Type: 
  Country: None (occurrence: None)
  Receive Date: 20110811
  Receipt Date: 20110208
  Transmission Date: 20111222
  Serious: No
  Sender: FDA-Public Use
  Company Number: US-BRISTOL-MYERS SQUIBB COMPANY-15541469

PATIENT
  Sex: Male

DRUGS (4)
  1. REYATAZ [Suspect]
     Dates: start: 20060101
  2. TENOFOVIR DISOPROXIL FUMARATE [Suspect]
  3. RITONAVIR [Suspect]
  4. ABACAVIR [Suspect]

REACTIONS (1)
  - NEPHROLITHIASIS [None]
